FAERS Safety Report 18575278 (Version 1)
Quarter: 2020Q4

REPORT INFORMATION
  Report Type: Spontaneous
  Country: US (occurrence: US)
  Receive Date: 20201202
  Receipt Date: 20201202
  Transmission Date: 20210114
  Serious: No
  Sender: FDA-Public Use
  Company Number: None

PATIENT
  Age: 61 Year
  Sex: Male

DRUGS (1)
  1. INFLIXIMAB-DYYB (INFLIXIMAB-DYYB 100MG/VIL INJ,LYPHL) [Suspect]
     Active Substance: INFLIXIMAB-DYYB
     Indication: RHEUMATOID ARTHRITIS
     Dosage: ?          OTHER STRENGTH:100MG/VIL;?
     Dates: start: 20181130, end: 20190205

REACTIONS (1)
  - Rash [None]

NARRATIVE: CASE EVENT DATE: 20190215
